FAERS Safety Report 7249674-0 (Version None)
Quarter: 2011Q1

REPORT INFORMATION
  Report Type: 
  Country: None (occurrence: None)
  Receive Date: 20110128
  Receipt Date: 20110114
  Transmission Date: 20110831
  Serious: Yes (Hospitalization)
  Sender: FDA-Public Use
  Company Number: GB-RANBAXY-2010R1-38464

PATIENT

DRUGS (6)
  1. AZATHIOPRINE [Interacting]
     Dosage: 75 MG, QD
     Route: 065
  2. AMOXICILLIN [Interacting]
     Indication: PNEUMONIA
     Dosage: UNK
     Route: 065
  3. TACROLIMUS [Interacting]
     Indication: OBLITERATIVE BRONCHIOLITIS
     Dosage: 3 MG, BID
     Route: 065
  4. CLARITHROMYCIN [Suspect]
     Dosage: 3 MG, BID
     Route: 065
  5. CLARITHROMYCIN [Suspect]
     Indication: PNEUMONIA
     Dosage: UNK
     Route: 048
  6. PREDNISOLONE [Interacting]
     Dosage: 10 MG, QD
     Route: 065

REACTIONS (2)
  - DRUG INTERACTION [None]
  - HAEMOLYTIC URAEMIC SYNDROME [None]
